FAERS Safety Report 8187383-4 (Version None)
Quarter: 2012Q1

REPORT INFORMATION
  Report Type: 
  Country: None (occurrence: None)
  Receive Date: 20120306
  Receipt Date: 20120301
  Transmission Date: 20120608
  Serious: Yes (Hospitalization)
  Sender: FDA-Public Use
  Company Number: IT-BAYER-2012-020741

PATIENT
  Age: 40 Year
  Sex: Female

DRUGS (3)
  1. ASPIRIN [Suspect]
     Dosage: 500 MG, ONCE
     Route: 048
     Dates: start: 20120129, end: 20120129
  2. VALIUM [Suspect]
     Indication: INTENTIONAL SELF-INJURY
     Dosage: 50 MG, ONCE
     Route: 048
     Dates: start: 20120129, end: 20120129
  3. ALCOHOL [Concomitant]
     Dosage: UNK
     Dates: start: 20120129, end: 20120129

REACTIONS (1)
  - SOPOR [None]
